FAERS Safety Report 24876298 (Version 2)
Quarter: 2025Q1

REPORT INFORMATION
  Report Type: Spontaneous
  Country: US (occurrence: US)
  Receive Date: 20250123
  Receipt Date: 20250123
  Transmission Date: 20250409
  Serious: Yes (Death, Other)
  Sender: AMGEN
  Company Number: US-AMGEN-USASP2025009101

PATIENT
  Age: 19 Year
  Sex: Female

DRUGS (3)
  1. ROMIPLOSTIM [Suspect]
     Active Substance: ROMIPLOSTIM
     Indication: Thrombocytopenia
     Dosage: 3 MICROGRAM/KILOGRAM, QWK
     Route: 058
  2. ROMIPLOSTIM [Suspect]
     Active Substance: ROMIPLOSTIM
     Indication: Thrombotic microangiopathy
     Dosage: 10 MICROGRAM/KILOGRAM, QWK
     Route: 058
  3. VALGANCICLOVIR [Concomitant]
     Active Substance: VALGANCICLOVIR

REACTIONS (5)
  - Pulmonary haemorrhage [Unknown]
  - Disease complication [Fatal]
  - Disease progression [Fatal]
  - Drug ineffective for unapproved indication [Unknown]
  - Off label use [Unknown]
